FAERS Safety Report 26180590 (Version 2)
Quarter: 2025Q4

REPORT INFORMATION
  Report Type: Report from Study
  Country: MX (occurrence: MX)
  Receive Date: 20251219
  Receipt Date: 20251229
  Transmission Date: 20260118
  Serious: Yes (Other)
  Sender: TAKEDA
  Company Number: MX-TAKEDA-2021TUS060294

PATIENT
  Age: 34 Year
  Sex: Female

DRUGS (4)
  1. ICATIBANT [Suspect]
     Active Substance: ICATIBANT ACETATE
     Indication: Hereditary angioedema
     Dosage: UNK
  2. ICATIBANT [Suspect]
     Active Substance: ICATIBANT ACETATE
     Dosage: 30 MILLIGRAM
  3. ICATIBANT [Suspect]
     Active Substance: ICATIBANT ACETATE
     Dosage: UNK
  4. ICATIBANT [Suspect]
     Active Substance: ICATIBANT ACETATE
     Dosage: 30 MILLIGRAM/3ML

REACTIONS (17)
  - Fatigue [Unknown]
  - Contusion [Unknown]
  - Dizziness [Unknown]
  - Eating disorder [Unknown]
  - Somnolence [Unknown]
  - Disorientation [Unknown]
  - Anxiety [Unknown]
  - Stress [Unknown]
  - Hyperphagia [Unknown]
  - Insomnia [Unknown]
  - Restlessness [Unknown]
  - Hyperhidrosis [Unknown]
  - Dyskinesia [Unknown]
  - Depressed mood [Unknown]
  - Feeling abnormal [Not Recovered/Not Resolved]
  - Speech disorder [Not Recovered/Not Resolved]
  - Drug ineffective [Unknown]

NARRATIVE: CASE EVENT DATE: 20250923
